FAERS Safety Report 5365188-7 (Version None)
Quarter: 2007Q2

REPORT INFORMATION
  Report Type: 
  Country: None (occurrence: None)
  Receive Date: 20070530
  Receipt Date: 20070124
  Transmission Date: 20071010
  Serious: No
  Sender: FDA-Public Use
  Company Number: 2007PV028952

PATIENT
  Age: 69 Year
  Sex: Male
  Weight: 83.9154 kg

DRUGS (5)
  1. BYETTA [Suspect]
     Indication: DIABETES MELLITUS NON-INSULIN-DEPENDENT
     Dosage: 10 MCG;BID;SC ; 5 MCG;BID;SC
     Route: 058
     Dates: start: 20050101, end: 20070110
  2. BYETTA [Suspect]
     Indication: DIABETES MELLITUS NON-INSULIN-DEPENDENT
     Dosage: 10 MCG;BID;SC ; 5 MCG;BID;SC
     Route: 058
     Dates: start: 20070111
  3. STARLIX [Concomitant]
  4. AVANDIA [Concomitant]
  5. GLUMETZA METFORMIN XL [Concomitant]

REACTIONS (6)
  - ABDOMINAL DISTENSION [None]
  - FATIGUE [None]
  - FLATULENCE [None]
  - INSOMNIA [None]
  - PAIN IN EXTREMITY [None]
  - WEIGHT DECREASED [None]
